FAERS Safety Report 20325840 (Version 2)
Quarter: 2022Q1

REPORT INFORMATION
  Report Type: Spontaneous
  Country: FR (occurrence: FR)
  Receive Date: 20220112
  Receipt Date: 20220311
  Transmission Date: 20220423
  Serious: Yes (Hospitalization, Other)
  Sender: FDA-Public Use
  Company Number: FR-CELLTRION INC.-2021FR013407

PATIENT

DRUGS (7)
  1. INFLECTRA [Suspect]
     Active Substance: INFLIXIMAB-DYYB
     Indication: Spondylitis
     Dosage: 700 MG EVERY 7 WEEKS
     Route: 041
     Dates: start: 2017
  2. INFLECTRA [Suspect]
     Active Substance: INFLIXIMAB-DYYB
     Indication: Psoriatic arthropathy
     Dosage: UNK
     Dates: start: 2019
  3. METHOTREXATE SODIUM [Concomitant]
     Active Substance: METHOTREXATE SODIUM
     Dosage: UNK
     Dates: start: 2013
  4. ACETAMINOPHEN\OPIUM [Concomitant]
     Active Substance: ACETAMINOPHEN\OPIUM
     Dosage: UNK
     Dates: start: 2016
  5. NOMEGESTROL ACETATE [Concomitant]
     Active Substance: NOMEGESTROL ACETATE
     Dosage: UNK
     Dates: start: 2015
  6. EBASTINE [Concomitant]
     Active Substance: EBASTINE
     Dosage: UNK
     Dates: start: 2010
  7. AMITRIPTYLINE HYDROCHLORIDE [Concomitant]
     Active Substance: AMITRIPTYLINE HYDROCHLORIDE
     Dosage: 18 DROP
     Dates: start: 2020

REACTIONS (15)
  - Lymphadenopathy [Unknown]
  - Weight decreased [Unknown]
  - Gallbladder disorder [Unknown]
  - Fatigue [Unknown]
  - Lymphoedema [Not Recovered/Not Resolved]
  - Haematological malignancy [Unknown]
  - Synovial cyst [Unknown]
  - Weight increased [Unknown]
  - General physical health deterioration [Unknown]
  - Axillary pain [Unknown]
  - Diverticulum intestinal [Unknown]
  - Peripheral swelling [Unknown]
  - Pain in extremity [Unknown]
  - Contrast media allergy [Unknown]
  - Diarrhoea [Unknown]

NARRATIVE: CASE EVENT DATE: 20210101
